FAERS Safety Report 25919275 (Version 2)
Quarter: 2025Q4

REPORT INFORMATION
  Report Type: Report from Study
  Country: EU (occurrence: EU)
  Receive Date: 20251014
  Receipt Date: 20251024
  Transmission Date: 20260117
  Serious: Yes (Death, Other)
  Sender: GILEAD
  Company Number: EU-GILEAD-2025-0732225

PATIENT
  Age: 66 Year
  Sex: Male

DRUGS (1)
  1. AXICABTAGENE CILOLEUCEL [Suspect]
     Active Substance: AXICABTAGENE CILOLEUCEL
     Indication: B-cell lymphoma
     Dosage: UNK
     Route: 065

REACTIONS (4)
  - Endocarditis [Fatal]
  - Cytokine release syndrome [Not Recovered/Not Resolved]
  - Neutropenia [Unknown]
  - Thrombocytopenia [Unknown]
